FAERS Safety Report 7995802-9 (Version None)
Quarter: 2011Q4

REPORT INFORMATION
  Report Type: 
  Country: None (occurrence: None)
  Receive Date: 20111220
  Receipt Date: 20111207
  Transmission Date: 20120403
  Serious: Yes (Hospitalization, Other)
  Sender: FDA-Public Use
  Company Number: PT-MYLANLABS-2011S1025273

PATIENT
  Age: 66 Year
  Sex: Female
  Weight: 55 kg

DRUGS (1)
  1. ACARBOSE [Suspect]
     Indication: TYPE 2 DIABETES MELLITUS

REACTIONS (1)
  - PNEUMATOSIS INTESTINALIS [None]
